FAERS Safety Report 19114388 (Version 2)
Quarter: 2021Q2

REPORT INFORMATION
  Report Type: Spontaneous
  Country: FR (occurrence: FR)
  Receive Date: 20210408
  Receipt Date: 20210513
  Transmission Date: 20210717
  Serious: Yes (Death)
  Sender: FDA-Public Use
  Company Number: FR-US-PROVELL PHARMACEUTICALS LLC-E2B_90083050

PATIENT
  Age: 92 Year
  Sex: Male
  Weight: 57 kg

DRUGS (8)
  1. IMOVANE [Suspect]
     Active Substance: ZOPICLONE
     Indication: PRODUCT USED FOR UNKNOWN INDICATION
     Route: 048
     Dates: end: 20210310
  2. BISOPROLOL FUMARATE. [Suspect]
     Active Substance: BISOPROLOL FUMARATE
     Indication: MYOCARDIAL ISCHAEMIA
     Route: 048
     Dates: end: 20210310
  3. PRAVASTATINE [Suspect]
     Active Substance: PRAVASTATIN
     Indication: DYSLIPIDAEMIA
     Route: 048
     Dates: end: 20210310
  4. LEVOTHYROX 100 [Suspect]
     Active Substance: LEVOTHYROXINE SODIUM
     Indication: HYPOTHYROIDISM
     Route: 048
     Dates: end: 20210310
  5. MODERNA COVID?19 VACCINE [Suspect]
     Active Substance: CX-024414
     Indication: COVID-19 IMMUNISATION
     Route: 030
     Dates: start: 20210309, end: 20210309
  6. SIMBRINZA [Suspect]
     Active Substance: BRIMONIDINE TARTRATE\BRINZOLAMIDE
     Indication: PRODUCT USED FOR UNKNOWN INDICATION
     Dosage: 10 MG/ML + 2 MG/ML, INC
     Route: 047
     Dates: end: 20210310
  7. MONOPROST [Suspect]
     Active Substance: LATANOPROST
     Indication: PRODUCT USED FOR UNKNOWN INDICATION
     Dosage: 50 MICROGRAM/ML, INC
     Route: 047
     Dates: end: 20210310
  8. LASILIX                            /00032601/ [Suspect]
     Active Substance: FUROSEMIDE
     Indication: MYOCARDIAL ISCHAEMIA
     Route: 048
     Dates: end: 20210310

REACTIONS (1)
  - Ischaemic stroke [Fatal]

NARRATIVE: CASE EVENT DATE: 20210310
